FAERS Safety Report 21086316 (Version 3)
Quarter: 2022Q3

REPORT INFORMATION
  Report Type: Report from Study
  Country: US (occurrence: US)
  Receive Date: 20220715
  Receipt Date: 20220719
  Transmission Date: 20221026
  Serious: Yes (Other)
  Sender: FDA-Public Use
  Company Number: US-NOVARTISTESTPH-NVSC2022US160104

PATIENT
  Sex: Male

DRUGS (1)
  1. XIIDRA [Suspect]
     Active Substance: LIFITEGRAST
     Indication: Dry age-related macular degeneration
     Dosage: UNK
     Route: 065
     Dates: start: 20200701

REACTIONS (4)
  - Toothache [Recovered/Resolved]
  - Swelling face [Recovered/Resolved]
  - Tooth disorder [Unknown]
  - Product use in unapproved indication [Unknown]
